FAERS Safety Report 4639844-X (Version None)
Quarter: 2005Q2

REPORT INFORMATION
  Report Type: 
  Country: None (occurrence: None)
  Receive Date: 20050328
  Receipt Date: 20050111
  Transmission Date: 20051028
  Serious: No
  Sender: FDA-Public Use
  Company Number: USA050188035

PATIENT
  Age: 20 Year
  Sex: Male

DRUGS (4)
  1. STRATTERA [Suspect]
     Dates: start: 20041001
  2. CONCERTA [Concomitant]
  3. LEXAPRO [Concomitant]
  4. DEXTROAMPHETAMINE (DEXAMFETAMINE) [Concomitant]

REACTIONS (1)
  - DRUG SCREEN POSITIVE [None]
